FAERS Safety Report 22292242 (Version 2)
Quarter: 2023Q2

REPORT INFORMATION
  Report Type: Report from Study
  Country: US (occurrence: US)
  Receive Date: 20230508
  Receipt Date: 20230510
  Transmission Date: 20230722
  Serious: Yes (Hospitalization, Other)
  Sender: FDA-Public Use
  Company Number: US-ABBVIE-4756767

PATIENT
  Age: 67 Year
  Sex: Female
  Weight: 92.532 kg

DRUGS (2)
  1. HUMIRA [Suspect]
     Active Substance: ADALIMUMAB
     Indication: Psoriasis
     Route: 058
     Dates: start: 20220505, end: 202303
  2. HUMIRA [Suspect]
     Active Substance: ADALIMUMAB
     Dosage: START DATE TEXT: UNKNOWN
     Route: 058

REACTIONS (4)
  - Coma [Recovered/Resolved]
  - Pneumonia [Recovered/Resolved]
  - Dyspnoea [Recovered/Resolved]
  - Endotracheal intubation [Recovered/Resolved]

NARRATIVE: CASE EVENT DATE: 20230301
